FAERS Safety Report 9891061 (Version 1)
Quarter: 2014Q1

REPORT INFORMATION
  Report Type: Spontaneous
  Country: GB (occurrence: GB)
  Receive Date: 20140212
  Receipt Date: 20140212
  Transmission Date: 20141002
  Serious: Yes (Disabling)
  Sender: FDA-Public Use
  Company Number: GB-GALDERMA-GB14000542

PATIENT
  Age: 74 Year
  Sex: Female
  Weight: 119 kg

DRUGS (18)
  1. DOXYCYCLINE [Suspect]
  2. ALENDRONIC ACID [Concomitant]
     Dates: start: 20131021
  3. ASPIRIN [Concomitant]
     Dates: start: 20131021
  4. FLUOXETINE [Concomitant]
     Dates: start: 20131021
  5. FUROSEMIDE [Concomitant]
     Dates: start: 20131021
  6. GABAPENTIN [Concomitant]
     Dates: start: 20131021
  7. GLICLAZIDE [Concomitant]
     Dates: start: 20131021
  8. HYDROXOCOBALAMIN [Concomitant]
     Dates: start: 20131108
  9. LANSOPRAZOLE [Concomitant]
     Dates: start: 20131021
  10. LEVOTHYROXINE [Concomitant]
     Dates: start: 20140120
  11. METFORMIN [Concomitant]
     Dates: start: 20131021
  12. PERINDOPRIL ERBUMINE [Concomitant]
     Dates: start: 20131021
  13. PREDNISOLONE [Concomitant]
     Dates: start: 20131021
  14. QUININE [Concomitant]
     Dates: start: 20131021
  15. SIMVASTATIN [Concomitant]
     Dates: start: 20131021
  16. SITAGLIPTIN [Concomitant]
     Dates: start: 20131021
  17. TILDIEM [Concomitant]
     Dates: start: 20131021
  18. ZOMORPH [Concomitant]
     Dates: start: 20131018

REACTIONS (1)
  - Vomiting [Recovering/Resolving]
